FAERS Safety Report 14319449 (Version 1)
Quarter: 2017Q4

REPORT INFORMATION
  Report Type: Spontaneous
  Country: US (occurrence: US)
  Receive Date: 20171222
  Receipt Date: 20171222
  Transmission Date: 20180321
  Serious: Yes (Death, Other)
  Sender: FDA-Public Use
  Company Number: US-009507513-1712USA010994

PATIENT
  Age: 86 Year
  Sex: Female

DRUGS (1)
  1. KEYTRUDA [Suspect]
     Active Substance: PEMBROLIZUMAB
     Indication: LYMPHOMA
     Dosage: 100 MG, Q3W
     Route: 042
     Dates: start: 20170403, end: 20170627

REACTIONS (3)
  - Feeling abnormal [Not Recovered/Not Resolved]
  - Malignant neoplasm progression [Fatal]
  - Crepitations [Not Recovered/Not Resolved]

NARRATIVE: CASE EVENT DATE: 2017
